FAERS Safety Report 20017349 (Version 1)
Quarter: 2021Q4

REPORT INFORMATION
  Report Type: Spontaneous
  Country: SE (occurrence: SE)
  Receive Date: 20211030
  Receipt Date: 20211030
  Transmission Date: 20220303
  Serious: Yes (Hospitalization)
  Sender: FDA-Public Use
  Company Number: None

PATIENT
  Age: 74 Year
  Sex: Female

DRUGS (5)
  1. METHOTREXATE [Suspect]
     Active Substance: METHOTREXATE
     Indication: Psoriatic arthropathy
     Dates: end: 202107
  2. HYDROCHLOROTHIAZIDE [Concomitant]
     Active Substance: HYDROCHLOROTHIAZIDE
     Dates: end: 202107
  3. VICTOZA [Concomitant]
     Active Substance: LIRAGLUTIDE
     Dates: end: 202107
  4. ENALAPRIL [Concomitant]
     Active Substance: ENALAPRIL
     Dates: end: 202107
  5. SIMVASTATIN [Concomitant]
     Active Substance: SIMVASTATIN
     Dates: end: 202107

REACTIONS (1)
  - Anaemia macrocytic [Recovering/Resolving]

NARRATIVE: CASE EVENT DATE: 20210701
